FAERS Safety Report 6124559-1 (Version None)
Quarter: 2009Q1

REPORT INFORMATION
  Report Type: 
  Country: None (occurrence: None)
  Receive Date: 20090317
  Receipt Date: 20090317
  Transmission Date: 20090719
  Serious: Yes (Hospitalization)
  Sender: FDA-Public Use
  Company Number: None

PATIENT
  Age: 33 Year
  Sex: Female
  Weight: 58.9676 kg

DRUGS (2)
  1. OVIDREL [Suspect]
     Indication: INFERTILITY
     Dosage: 250 UG ONCE SQ
     Dates: start: 20090226, end: 20090226
  2. ZOLOFT [Concomitant]

REACTIONS (1)
  - ATRIAL FIBRILLATION [None]
